FAERS Safety Report 7494247-8 (Version None)
Quarter: 2011Q2

REPORT INFORMATION
  Report Type: 
  Country: None (occurrence: None)
  Receive Date: 20110520
  Receipt Date: 20110516
  Transmission Date: 20111010
  Serious: Yes (Hospitalization)
  Sender: FDA-Public Use
  Company Number: FR-BRISTOL-MYERS SQUIBB COMPANY-15747355

PATIENT
  Age: 60 Year
  Sex: Male

DRUGS (1)
  1. QUESTRAN [Suspect]
     Indication: HYPERCHOLESTEROLAEMIA
     Dosage: 1DF:1 SACHET  DURATION OF THERAPY:3 OR 4 YEARS

REACTIONS (3)
  - HYPERVENTILATION [None]
  - HYPOMAGNESAEMIA [None]
  - HYPOCALCAEMIA [None]
